FAERS Safety Report 7989880-0 (Version None)
Quarter: 2011Q4

REPORT INFORMATION
  Report Type: 
  Country: None (occurrence: None)
  Receive Date: 20111219
  Receipt Date: 20110119
  Transmission Date: 20120403
  Serious: No
  Sender: FDA-Public Use
  Company Number: US-ASTRAZENECA-2011SE04042

PATIENT
  Age: 62 Year
  Sex: Male

DRUGS (2)
  1. FISH OIL [Concomitant]
  2. CRESTOR [Suspect]
     Route: 048

REACTIONS (2)
  - RENAL DISORDER [None]
  - LIVER DISORDER [None]
